FAERS Safety Report 8832426 (Version 3)
Quarter: 2013Q1

REPORT INFORMATION
  Report Type: Spontaneous
  Country: DE (occurrence: None)
  Receive Date: 20121005
  Receipt Date: 20121227
  Transmission Date: 20140127
  Serious: No
  Sender: FDA-Public Use
  Company Number: 1209DEU009754

PATIENT
  Age: 69 Year
  Sex: Female

DRUGS (1)
  1. CEFTIBUTEN [Suspect]
     Route: 048
     Dates: start: 20120913

REACTIONS (2)
  - Rash [None]
  - Urticaria [None]
